FAERS Safety Report 6438187-1 (Version None)
Quarter: 2009Q4

REPORT INFORMATION
  Report Type: 
  Country: None (occurrence: None)
  Receive Date: 20091112
  Receipt Date: 20091030
  Transmission Date: 20100525
  Serious: Yes (Hospitalization)
  Sender: FDA-Public Use
  Company Number: US-ELI_LILLY_AND_COMPANY-US200910007601

PATIENT
  Sex: Female

DRUGS (3)
  1. FORTEO [Suspect]
     Indication: OSTEOPOROSIS
     Dates: start: 20050101
  2. FORTEO [Suspect]
     Dates: start: 20090101
  3. CYMBALTA [Suspect]
     Indication: FIBROMYALGIA
     Dosage: 60 MG, DAILY (1/D)
     Dates: start: 20030101

REACTIONS (12)
  - ATRIAL FIBRILLATION [None]
  - CATARACT [None]
  - FEELING ABNORMAL [None]
  - GLAUCOMA [None]
  - HEADACHE [None]
  - INTRAOCULAR PRESSURE INCREASED [None]
  - MALAISE [None]
  - NAUSEA [None]
  - OSTEOPOROSIS [None]
  - PAIN IN EXTREMITY [None]
  - VISUAL IMPAIRMENT [None]
  - VOMITING [None]
